FAERS Safety Report 23022045 (Version 1)
Quarter: 2023Q4

REPORT INFORMATION
  Report Type: Spontaneous
  Country: FR (occurrence: FR)
  Receive Date: 20231003
  Receipt Date: 20231003
  Transmission Date: 20240110
  Serious: Yes (Hospitalization)
  Sender: FDA-Public Use
  Company Number: None

PATIENT
  Age: 28 Year
  Sex: Female
  Weight: 56 kg

DRUGS (8)
  1. INFLIXIMAB [Suspect]
     Active Substance: INFLIXIMAB
     Indication: Colitis ulcerative
     Dosage: PROTOCOL: S0 : 5MG/KG : 300MG, S2: 5MG/KG : 300MG, S6 : 10MG/KG : 600MG, S12 : 10MG/KG : 600MG AND S
     Route: 042
     Dates: start: 20230412, end: 20230412
  2. INFLIXIMAB [Suspect]
     Active Substance: INFLIXIMAB
     Dosage: PROTOCOL: S0 : 5MG/KG : 300MG, S2: 5MG/KG : 300MG, S6 : 10MG/KG : 600MG, S12 : 10MG/KG : 600MG AND S
     Route: 042
     Dates: start: 20230621, end: 20230621
  3. INFLIXIMAB [Suspect]
     Active Substance: INFLIXIMAB
     Dosage: PROTOCOL: S0 : 5MG/KG : 300MG, S2: 5MG/KG : 300MG, S6 : 10MG/KG : 600MG, S12 : 10MG/KG : 600MG AND S
     Route: 042
     Dates: start: 20230510, end: 20230510
  4. INFLIXIMAB [Suspect]
     Active Substance: INFLIXIMAB
     Dosage: PROTOCOL: S0 : 5MG/KG : 300MG, S2: 5MG/KG : 300MG, S6 : 10MG/KG : 600MG, S12 : 10MG/KG : 600MG AND S
     Route: 042
     Dates: start: 20230327, end: 20230327
  5. INFLIXIMAB [Suspect]
     Active Substance: INFLIXIMAB
     Dosage: PROTOCOL: S0 : 5MG/KG : 300MG, S2: 5MG/KG : 300MG, S6 : 10MG/KG : 600MG, S12 : 10MG/KG : 600MG AND S
     Route: 042
     Dates: start: 20230719, end: 20230719
  6. PURINETHOL [Suspect]
     Active Substance: MERCAPTOPURINE
     Indication: Colitis ulcerative
     Dosage: 50MG/DAY, SCORED TABLET
     Route: 048
     Dates: start: 20230704, end: 20230816
  7. PURINETHOL [Suspect]
     Active Substance: MERCAPTOPURINE
     Dosage: 75MG/DAY, SCORED TABLET
     Route: 048
     Dates: start: 20230621, end: 20230704
  8. HYDROCORTISONE [Concomitant]
     Active Substance: HYDROCORTISONE
     Indication: Colitis ulcerative
     Dosage: 20MG MORNING 10MG EVENING
     Route: 048
     Dates: start: 20230327, end: 20230621

REACTIONS (2)
  - Facial paralysis [Recovering/Resolving]
  - Product use issue [Unknown]

NARRATIVE: CASE EVENT DATE: 20230720
